FAERS Safety Report 4840699-9 (Version None)
Quarter: 2005Q4

REPORT INFORMATION
  Report Type: 
  Country: None (occurrence: None)
  Receive Date: 20051130
  Receipt Date: 20051118
  Transmission Date: 20060501
  Serious: Yes (Life-Threatening)
  Sender: FDA-Public Use
  Company Number: JP-JNJFOC-20051002824

PATIENT
  Sex: Female

DRUGS (7)
  1. RISPERDAL [Suspect]
     Route: 048
  2. RISPERDAL [Suspect]
     Indication: SCHIZOPHRENIA
     Route: 048
  3. ZOTEPINE [Concomitant]
     Indication: SCHIZOPHRENIA
     Route: 048
  4. HALOPERIDOL [Concomitant]
     Indication: SCHIZOPHRENIA
     Route: 048
  5. LITHIUM CARBONATE [Concomitant]
     Indication: SCHIZOPHRENIA
     Route: 048
  6. VALPROATE SODIUM [Concomitant]
     Indication: EPILEPSY
     Route: 048
  7. PHENYTOIN [Concomitant]
     Indication: EPILEPSY
     Route: 048

REACTIONS (5)
  - CONVULSION [None]
  - DEPRESSED LEVEL OF CONSCIOUSNESS [None]
  - DISSEMINATED INTRAVASCULAR COAGULATION [None]
  - NEUROLEPTIC MALIGNANT SYNDROME [None]
  - RESPIRATORY FAILURE [None]
